FAERS Safety Report 6008762-7 (Version None)
Quarter: 2008Q4

REPORT INFORMATION
  Report Type: 
  Country: None (occurrence: None)
  Receive Date: 20081215
  Receipt Date: 20081215
  Transmission Date: 20090506
  Serious: Yes (Hospitalization)
  Sender: FDA-Public Use
  Company Number: None

PATIENT
  Age: 86 Year
  Sex: Male

DRUGS (21)
  1. LISINOPRIL [Suspect]
  2. FLUNISOLIDE [Concomitant]
  3. SERTRALINE [Concomitant]
  4. ALBUTEROL [Concomitant]
  5. IPRATROPIUM BROMIDE [Concomitant]
  6. ASPIRIN [Concomitant]
  7. CLOPIDOGREL [Concomitant]
  8. DONEZEPIL [Concomitant]
  9. CYPROHEPTADINE HCL [Concomitant]
  10. FAMOTIDINE [Concomitant]
  11. FUROSEMIDE [Concomitant]
  12. INSULIN NPH [Concomitant]
  13. MOMETASONE FUROATE [Concomitant]
  14. ISOSORBIDE MONONITRATE [Concomitant]
  15. LEVETIRACETAM [Concomitant]
  16. MAGNESIUM GLUCONATE [Concomitant]
  17. METOCLOPRAMIDE [Concomitant]
  18. METOPROLOL SUCCINATE EXTENDED RELEASE [Concomitant]
  19. MODAFINIL [Concomitant]
  20. NITROGLYCERIN [Concomitant]
  21. SIMVASTATIN [Concomitant]

REACTIONS (7)
  - ACUTE MYOCARDIAL INFARCTION [None]
  - ANOREXIA [None]
  - DEHYDRATION [None]
  - GENERAL PHYSICAL HEALTH DETERIORATION [None]
  - HYPOPHAGIA [None]
  - IMPAIRED GASTRIC EMPTYING [None]
  - NAUSEA [None]
